FAERS Safety Report 9884145 (Version 2)
Quarter: 2014Q1

REPORT INFORMATION
  Report Type: Spontaneous
  Country: US (occurrence: US)
  Receive Date: 20140210
  Receipt Date: 20140210
  Transmission Date: 20141002
  Serious: No
  Sender: FDA-Public Use
  Company Number: US-ALLERGAN-1318940US

PATIENT
  Sex: Male

DRUGS (3)
  1. BOTOX COSMETIC [Suspect]
     Indication: SKIN WRINKLING
     Dosage: 79 UNITS, SINGLE
     Route: 030
     Dates: start: 20131119, end: 20131119
  2. BOTOX COSMETIC [Suspect]
     Indication: SKIN WRINKLING
     Dosage: 77 UNITS, SINGLE
     Route: 030
     Dates: start: 201310, end: 201310
  3. BOTOX COSMETIC [Suspect]
     Indication: SKIN WRINKLING
     Dosage: 77 UNITS, SINGLE
     Route: 030
     Dates: start: 20130702, end: 20130702

REACTIONS (2)
  - Drug resistance [Unknown]
  - Drug ineffective [Unknown]
